FAERS Safety Report 4310804-1 (Version None)
Quarter: 2004Q1

REPORT INFORMATION
  Report Type: 
  Country: None (occurrence: None)
  Receive Date: 20040302
  Receipt Date: 20040223
  Transmission Date: 20041129
  Serious: Yes (Hospitalization)
  Sender: FDA-Public Use
  Company Number: US-JNJFOC-20040205149

PATIENT
  Age: 71 Year
  Sex: Female

DRUGS (7)
  1. REMICADE [Suspect]
     Indication: RHEUMATOID ARTHRITIS
     Dosage: INTRAVENOUS
     Route: 042
     Dates: start: 20010108, end: 20030601
  2. MIACALCIN (CALCITONIN, SALMON) SPRAY [Concomitant]
  3. FOSAMAX [Concomitant]
  4. METHOTREXATE [Concomitant]
  5. FOLIC ACID [Concomitant]
  6. CALCIUM + D (CALCIUM) [Concomitant]
  7. MULTIVITAMIN (MULTIVITAMINS) [Concomitant]

REACTIONS (6)
  - ASTHENIA [None]
  - HYPOKALAEMIA [None]
  - HYPOMAGNESAEMIA [None]
  - LEGIONELLA INFECTION [None]
  - PNEUMONIA [None]
  - RESPIRATORY DISTRESS [None]
